FAERS Safety Report 14063475 (Version 1)
Quarter: 2017Q4

REPORT INFORMATION
  Report Type: Spontaneous
  Country: US (occurrence: US)
  Receive Date: 20171009
  Receipt Date: 20171009
  Transmission Date: 20180321
  Serious: Yes (Other)
  Sender: FDA-Public Use
  Company Number: US-BAYER-2017-185954

PATIENT
  Sex: Female

DRUGS (1)
  1. BAYER ASPIRIN [Suspect]
     Active Substance: ASPIRIN
     Route: 065

REACTIONS (7)
  - Drug ineffective [Unknown]
  - Reaction to colouring [Unknown]
  - Malaise [Unknown]
  - Urticaria [Unknown]
  - Dermatitis contact [Unknown]
  - Drug dependence [Unknown]
  - Product quality issue [None]
